FAERS Safety Report 9307009 (Version 4)
Quarter: 2015Q3

REPORT INFORMATION
  Report Type: Report from Study
  Country: GB (occurrence: GB)
  Receive Date: 20130523
  Receipt Date: 20150924
  Transmission Date: 20151125
  Serious: Yes (Hospitalization)
  Sender: FDA-Public Use
  Company Number: GB-MERCK-1211GBR008118

PATIENT
  Age: 61 Year
  Sex: Male

DRUGS (10)
  1. LENALIDOMIDE [Suspect]
     Active Substance: LENALIDOMIDE
     Indication: PLASMA CELL MYELOMA
     Dosage: 100 MG, QD. ON DAYS 1-21
     Route: 048
     Dates: start: 20121012, end: 20121114
  2. THALIDOMIDE [Suspect]
     Active Substance: THALIDOMIDE
     Indication: PLASMA CELL MYELOMA
     Dosage: 100 MG, CYCLICAL. DAYS 1-21
     Route: 048
     Dates: start: 20110902, end: 20120218
  3. BORTEZOMIB [Suspect]
     Active Substance: BORTEZOMIB
     Indication: PLASMA CELL MYELOMA
     Dosage: 2-3 MG, CYCLICAL. ON DAYS 1, 4, 8, 11
     Route: 042
     Dates: start: 20120207, end: 20120330
  4. VORINOSTAT [Suspect]
     Active Substance: VORINOSTAT
     Indication: PLASMA CELL MYELOMA
     Dosage: 300 MG, QD ON DAYS 1-7, 15-21
     Route: 048
     Dates: start: 20121012, end: 20121114
  5. DEXAMETHASONE. [Suspect]
     Active Substance: DEXAMETHASONE
     Indication: PLASMA CELL MYELOMA
     Dosage: 21 MG, CYCLICAL. ON DAYS 1-2, 4-5, 8-9 AND 11-12
     Route: 048
     Dates: start: 20110902, end: 20120331
  6. CYCLOPHOSPHAMIDE. [Suspect]
     Active Substance: CYCLOPHOSPHAMIDE
     Indication: PLASMA CELL MYELOMA
     Dosage: 500 MG, QW
     Route: 048
     Dates: start: 20110902, end: 20120403
  7. VORINOSTAT [Suspect]
     Active Substance: VORINOSTAT
     Dosage: 300 MG, QD, DAYS1-7 AND 15-21
     Route: 048
     Dates: start: 20121012, end: 20121129
  8. LENALIDOMIDE [Suspect]
     Active Substance: LENALIDOMIDE
     Dosage: 100 MG, QD. ON DAYS 1-21
     Route: 048
     Dates: start: 20121012, end: 20121117
  9. VORINOSTAT [Suspect]
     Active Substance: VORINOSTAT
     Dosage: 200 MG, QD ON DAYS 1-7, 15-21
     Route: 048
     Dates: start: 20121012, end: 20130117
  10. LENALIDOMIDE [Suspect]
     Active Substance: LENALIDOMIDE
     Dosage: 100 MG, QD. ON DAYS 1-21
     Route: 048
     Dates: start: 20121012, end: 20121129

REACTIONS (6)
  - Lower respiratory tract infection [Recovered/Resolved]
  - Vomiting [Recovered/Resolved]
  - Gastrointestinal disorder [Recovered/Resolved]
  - Pyrexia [Recovered/Resolved]
  - Neutropenic sepsis [Recovered/Resolved]
  - Cough [Recovered/Resolved]

NARRATIVE: CASE EVENT DATE: 20121114
